FAERS Safety Report 9056876 (Version 1)
Quarter: 2013Q1

REPORT INFORMATION
  Report Type: Report from Study
  Country: JP (occurrence: JP)
  Receive Date: 20130201
  Receipt Date: 20130201
  Transmission Date: 20140127
  Serious: Yes (Other)
  Sender: FDA-Public Use
  Company Number: JP-GLAXOSMITHKLINE-B0860843A

PATIENT
  Age: 45 None
  Sex: Female
  Weight: 69 kg

DRUGS (11)
  1. TYKERB [Suspect]
     Indication: BREAST CANCER
     Route: 048
     Dates: start: 20091002, end: 20091016
  2. TYKERB [Suspect]
     Indication: BREAST CANCER
     Route: 048
     Dates: start: 20091102
  3. XELODA [Suspect]
     Route: 048
     Dates: start: 20091002, end: 20091016
  4. XELODA [Suspect]
     Route: 048
     Dates: start: 20091102, end: 20091115
  5. XELODA [Suspect]
     Route: 048
     Dates: start: 20091123, end: 20091220
  6. XELODA [Suspect]
     Route: 048
     Dates: start: 20100121, end: 20100514
  7. LEUPRORELIN ACETATE [Concomitant]
     Route: 058
     Dates: start: 20100409
  8. PREDNISOLONE [Concomitant]
     Indication: NEUROPATHY PERIPHERAL
     Route: 048
     Dates: start: 20091116, end: 20091130
  9. DEXAMETHASONE [Concomitant]
     Indication: NEUROPATHY PERIPHERAL
     Route: 048
     Dates: start: 20091102, end: 20091116
  10. GLYCERIN [Concomitant]
     Indication: NEUROPATHY PERIPHERAL
     Route: 042
     Dates: end: 20091102
  11. ZOLEDRONIC ACID [Concomitant]
     Indication: METASTASES TO BONE
     Route: 042
     Dates: start: 20091101

REACTIONS (8)
  - Injection site infection [Recovered/Resolved]
  - Paronychia [Recovered/Resolved]
  - Oedema [Recovered/Resolved]
  - Diarrhoea [Recovered/Resolved]
  - Cystitis [Recovered/Resolved]
  - Cystitis [Recovering/Resolving]
  - Oedema [Recovered/Resolved]
  - Dry skin [Not Recovered/Not Resolved]
